FAERS Safety Report 4707894-0 (Version None)
Quarter: 2005Q3

REPORT INFORMATION
  Report Type: 
  Country: None (occurrence: None)
  Receive Date: 20050707
  Receipt Date: 20041001
  Transmission Date: 20060218
  Serious: No
  Sender: FDA-Public Use
  Company Number: US-BRISTOL-MYERS SQUIBB COMPANY-12719373

PATIENT
  Age: 82 Year
  Sex: Female
  Weight: 61 kg

DRUGS (6)
  1. SINEMET CR [Suspect]
     Indication: PARKINSON'S DISEASE
     Dosage: DOSE= ^100/25 MG^.  DRUG TAKEN ^ON AND OFF^ OVER THE LAST 5 YEARS.
     Route: 048
  2. STALEVO 100 [Suspect]
     Indication: PARKINSON'S DISEASE
     Dosage: INITIATED THERAPY APPROXIMATELY 4 AND 1/2 YEARS AGO.
     Route: 048
  3. FOSAMAX [Concomitant]
  4. VITAMINS [Concomitant]
  5. ASPIRIN [Concomitant]
  6. BLOOD PRESSURE MEDICATION [Concomitant]

REACTIONS (3)
  - DYSARTHRIA [None]
  - SOMNOLENCE [None]
  - VERTIGO [None]
